FAERS Safety Report 9227822 (Version 1)
Quarter: 2013Q2

REPORT INFORMATION
  Report Type: Spontaneous
  Country: BR (occurrence: None)
  Receive Date: 20130410
  Receipt Date: 20130410
  Transmission Date: 20140414
  Serious: Yes (Hospitalization, Other)
  Sender: FDA-Public Use
  Company Number: DSJ-2013-06378

PATIENT
  Age: 7 Decade
  Sex: Female
  Weight: 64 kg

DRUGS (9)
  1. BENICAR (OLMESARTAN MEDOXOMIL) (TABLET) (OLMESARTAN MEDOXOMIL) [Suspect]
     Indication: HYPERTENSION
     Dosage: (20 MG, 1 IN 1 D), ORAL
     Route: 048
     Dates: start: 2010
  2. SIMVASTATIN [Suspect]
     Indication: HYPERCHOLESTEROLAEMIA
     Route: 048
     Dates: start: 2010
  3. MEDICINE FOR ASTHMA [Suspect]
     Dates: start: 201212
  4. ANTIBIOTIC MEDICINE (ANTIBIOTICS) [Suspect]
     Dates: start: 201303
  5. ALPRAZOLAM [Concomitant]
  6. LEVOTHYROXINE SODIUM [Concomitant]
  7. CLONAZEPAM [Concomitant]
  8. CLOPIDOGREL [Concomitant]
  9. ESOMEPRAZOLE [Concomitant]

REACTIONS (11)
  - Hypotension [None]
  - Asthma [None]
  - Drug ineffective [None]
  - Pruritus [None]
  - Drug administration error [None]
  - Dyspnoea [None]
  - Wheezing [None]
  - Cystitis [None]
  - Weight decreased [None]
  - Syncope [None]
  - Musculoskeletal disorder [None]
